FAERS Safety Report 6902934-2 (Version None)
Quarter: 2010Q3

REPORT INFORMATION
  Report Type: 
  Country: None (occurrence: None)
  Receive Date: 20100803
  Receipt Date: 20080821
  Transmission Date: 20110219
  Serious: Yes (Other)
  Sender: FDA-Public Use
  Company Number: US-PFIZER INC-2008070119

PATIENT
  Sex: Female
  Weight: 70 kg

DRUGS (10)
  1. LYRICA [Interacting]
     Indication: BURNING SENSATION
     Dates: start: 20080629
  2. NEURONTIN [Suspect]
     Indication: BURNING SENSATION
  3. CYMBALTA [Interacting]
     Dates: start: 20080806, end: 20080806
  4. OXYCODONE HCL AND ACETAMINOPHEN [Concomitant]
  5. SYNTHROID [Concomitant]
  6. ADVAIR DISKUS 100/50 [Concomitant]
  7. LISINOPRIL [Concomitant]
  8. OXYGEN [Concomitant]
  9. ALPRAZOLAM [Concomitant]
  10. COMBIVENT [Concomitant]

REACTIONS (13)
  - BRADYPHRENIA [None]
  - BURNING SENSATION [None]
  - DISTURBANCE IN ATTENTION [None]
  - DRUG INEFFECTIVE [None]
  - DRUG INTERACTION [None]
  - DRY MOUTH [None]
  - FALL [None]
  - HAND FRACTURE [None]
  - HEADACHE [None]
  - ILL-DEFINED DISORDER [None]
  - POLLAKIURIA [None]
  - SOMNOLENCE [None]
  - URINARY INCONTINENCE [None]
